FAERS Safety Report 5273136-3 (Version None)
Quarter: 2007Q1

REPORT INFORMATION
  Report Type: 
  Country: None (occurrence: None)
  Receive Date: 20070322
  Receipt Date: 20070302
  Transmission Date: 20070707
  Serious: Yes (Other)
  Sender: FDA-Public Use
  Company Number: US-PFIZER INC-2007017698

PATIENT
  Sex: Female
  Weight: 81.6 kg

DRUGS (2)
  1. CHANTIX [Suspect]
     Indication: SMOKING CESSATION THERAPY
     Dates: start: 20070201, end: 20070218
  2. ALL OTHER THERAPEUTIC PRODUCTS [Concomitant]
     Indication: PAIN

REACTIONS (2)
  - PAIN [None]
  - SKIN DISCOMFORT [None]
